FAERS Safety Report 5330681-X (Version None)
Quarter: 2007Q2

REPORT INFORMATION
  Report Type: 
  Country: None (occurrence: None)
  Receive Date: 20070522
  Receipt Date: 20070510
  Transmission Date: 20071010
  Serious: No
  Sender: FDA-Public Use
  Company Number: PHEH2007US05924

PATIENT
  Sex: Female

DRUGS (1)
  1. ZELNORM [Suspect]
     Dates: start: 20070201

REACTIONS (3)
  - CHEST PAIN [None]
  - DISCOMFORT [None]
  - HYPERHIDROSIS [None]
